FAERS Safety Report 10236215 (Version 1)
Quarter: 2014Q2

REPORT INFORMATION
  Report Type: Spontaneous
  Country: US (occurrence: US)
  Receive Date: 20140613
  Receipt Date: 20140613
  Transmission Date: 20141212
  Serious: Yes (Other)
  Sender: FDA-Public Use
  Company Number: US-JNJFOC-20140605266

PATIENT
  Sex: Female

DRUGS (8)
  1. REMICADE [Suspect]
     Indication: CROHN^S DISEASE
     Dosage: COUPLE OF YEARS
     Route: 042
  2. BENADRYL [Suspect]
     Indication: PREMEDICATION
     Route: 048
  3. ASACOL [Concomitant]
     Route: 065
  4. ACETAMINOPHEN [Concomitant]
     Indication: PREMEDICATION
     Route: 065
  5. DICYCLOMINE [Concomitant]
     Route: 065
  6. VITAMIN D [Concomitant]
     Route: 065
  7. VITAMIN B12 [Concomitant]
     Route: 065
  8. PRO AIR [Concomitant]
     Route: 065

REACTIONS (1)
  - Retinal vein occlusion [Recovering/Resolving]
